FAERS Safety Report 9831733 (Version 4)
Quarter: 2015Q2

REPORT INFORMATION
  Report Type: Spontaneous
  Country: US (occurrence: US)
  Receive Date: 20140121
  Receipt Date: 20150430
  Transmission Date: 20150821
  Serious: Yes (Other)
  Sender: FDA-Public Use
  Company Number: US-PFIZER INC-2014014061

PATIENT
  Age: 81 Year
  Sex: Female

DRUGS (1)
  1. TIKOSYN [Suspect]
     Active Substance: DOFETILIDE
     Indication: CARDIAC DISORDER
     Dosage: 0.125 MG, 2X/DAY
     Dates: start: 20130810

REACTIONS (8)
  - Fatigue [Unknown]
  - Body height decreased [Unknown]
  - Skeletal injury [Unknown]
  - Mastication disorder [Unknown]
  - Gait disturbance [Recovering/Resolving]
  - Weight decreased [Unknown]
  - Fall [Unknown]
  - Nasopharyngitis [Not Recovered/Not Resolved]
